FAERS Safety Report 4368340-2 (Version None)
Quarter: 2004Q2

REPORT INFORMATION
  Report Type: 
  Country: None (occurrence: None)
  Receive Date: 20040525
  Receipt Date: 20040512
  Transmission Date: 20050107
  Serious: Yes (Other)
  Sender: FDA-Public Use
  Company Number: NLWYE565806FEB04

PATIENT
  Age: 50 Year
  Sex: Male

DRUGS (4)
  1. RAPAMUNE [Suspect]
     Indication: PROPHYLAXIS AGAINST TRANSPLANT REJECTION
     Dosage: 6-8 MG PER DAY
     Dates: start: 20030805
  2. MYCOPHENOLATE MOFETIL (MYCOPHENOLATE MOFETIL) [Concomitant]
  3. CORTICOSTEROIDS (CORTICOSTEROIDS) [Concomitant]
  4. ZENAPAX [Concomitant]

REACTIONS (3)
  - GRAFT DYSFUNCTION [None]
  - HAEMODIALYSIS [None]
  - RENAL TUBULAR NECROSIS [None]
